FAERS Safety Report 17923963 (Version 1)
Quarter: 2020Q2

REPORT INFORMATION
  Report Type: Spontaneous
  Country: US (occurrence: US)
  Receive Date: 20200622
  Receipt Date: 20200622
  Transmission Date: 20200714
  Serious: No
  Sender: FDA-Public Use
  Company Number: US-MYLANLABS-2020M1054293

PATIENT
  Sex: Female
  Weight: 68 kg

DRUGS (4)
  1. DHEA [Suspect]
     Active Substance: PRASTERONE
     Indication: PRODUCT USED FOR UNKNOWN INDICATION
     Dosage: 10 MILLIGRAM, QD (ONCE DAILY)
     Route: 048
     Dates: start: 202001
  2. PROGESTERONE. [Concomitant]
     Active Substance: PROGESTERONE
     Indication: PROPHYLAXIS
     Dosage: EVERY 2 MONTHS FOR 12 DAYS AT A TIME FOR AT LEAST 5 YEARS
  3. ESTRADIOL TRANSDERMAL SYSTEM [Suspect]
     Active Substance: ESTRADIOL
     Indication: BLOOD OESTROGEN DECREASED
     Dosage: 0.05 MILLIGRAM, BIWEEKLY
     Route: 062
     Dates: start: 202001
  4. SYNTHROID [Concomitant]
     Active Substance: LEVOTHYROXINE SODIUM
     Indication: THYROID HORMONE REPLACEMENT THERAPY
     Dosage: 0.15 MILLIGRAM, QD

REACTIONS (1)
  - Drug ineffective [Unknown]

NARRATIVE: CASE EVENT DATE: 2020
